FAERS Safety Report 4740526-4 (Version None)
Quarter: 2005Q3

REPORT INFORMATION
  Report Type: 
  Country: None (occurrence: None)
  Receive Date: 20050808
  Receipt Date: 20050726
  Transmission Date: 20060218
  Serious: Yes (Other)
  Sender: FDA-Public Use
  Company Number: 2005099953

PATIENT
  Age: 49 Year
  Sex: Female
  Weight: 86.1834 kg

DRUGS (4)
  1. NATURAL CITRUS LISTERINE (MENTHOL, METHYL SALICYLATE, EUCALYPTOL, THYM [Suspect]
     Indication: DENTAL DISORDER PROPHYLAXIS
     Dosage: NOT EVEN HALF WAY IN 5 OZ. CUP,
     Dates: start: 20050621, end: 20050621
  2. LEVOTHYRXINE SODIUM (LEVOTHYROXINE SODIUM) [Concomitant]
  3. CLONIDINE [Concomitant]
  4. HYDROCHLOROTHIAZIDE [Concomitant]

REACTIONS (7)
  - FEELING ABNORMAL [None]
  - GLOSSODYNIA [None]
  - ORAL INFECTION [None]
  - ORAL MUCOSAL BLISTERING [None]
  - PAIN [None]
  - PURULENCE [None]
  - TOOTH DISCOLOURATION [None]
